FAERS Safety Report 8013787-6 (Version None)
Quarter: 2011Q4

REPORT INFORMATION
  Report Type: 
  Country: None (occurrence: None)
  Receive Date: 20111229
  Receipt Date: 20111220
  Transmission Date: 20120403
  Serious: Yes (Other)
  Sender: FDA-Public Use
  Company Number: CZ-PFIZER INC-2011288002

PATIENT
  Age: 37 Year
  Sex: Male

DRUGS (5)
  1. BISTON [Concomitant]
     Dosage: 1.5 DF, 3X/DAY
     Route: 048
  2. DICLOFENAC DUO ^PHARMAVIT^ [Concomitant]
     Dosage: 75 MG, 2X/DAY
  3. OMEPRAZOLE [Concomitant]
     Dosage: 20 MG, 1X/DAY
  4. MEDROL [Suspect]
     Indication: RHEUMATOID ARTHRITIS
     Dosage: 8 MG, 1X/DAY
     Route: 048
     Dates: start: 20050601, end: 20090101
  5. MEDROL [Suspect]
     Dosage: 4 MG, 1X/DAY
     Dates: start: 20090101

REACTIONS (3)
  - BRONCHITIS [None]
  - IMMUNOSUPPRESSION [None]
  - BRONCHOPNEUMONIA [None]
